FAERS Safety Report 11384330 (Version 1)
Quarter: 2015Q3

REPORT INFORMATION
  Report Type: Spontaneous
  Country: US (occurrence: US)
  Receive Date: 20150811
  Receipt Date: 20150811
  Transmission Date: 20151125
  Serious: No
  Sender: FDA-Public Use
  Company Number: US-ELI_LILLY_AND_COMPANY-US201011004788

PATIENT
  Age: 53 Year
  Sex: Female

DRUGS (13)
  1. SERTRALINE [Concomitant]
     Active Substance: SERTRALINE HYDROCHLORIDE
     Dosage: 100 MG, UNK
  2. OMEPRAZOLE. [Concomitant]
     Active Substance: OMEPRAZOLE
     Dosage: 40 MG, UNK
  3. LASIX [Concomitant]
     Active Substance: FUROSEMIDE
     Dosage: 80 MG, DAILY (1/D)
  4. FENTANYL. [Concomitant]
     Active Substance: FENTANYL
     Dosage: 100 UG, 3/D
     Route: 062
  5. VITAMIN B12 [Concomitant]
     Active Substance: CYANOCOBALAMIN
     Dosage: 1 D/F, 2/W
     Route: 030
  6. ADCIRCA [Suspect]
     Active Substance: TADALAFIL
     Dosage: 10 MG, UNK
  7. OXYGEN. [Concomitant]
     Active Substance: OXYGEN
     Dosage: 1 D/F, UNK
  8. ASPIRIN. [Concomitant]
     Active Substance: ASPIRIN
     Dosage: 81 MG, UNK
  9. NITROGLYCERIN. [Concomitant]
     Active Substance: NITROGLYCERIN
     Dosage: 1 D/F, AS NEEDED
  10. HYDROCODONE [Concomitant]
     Active Substance: HYDROCODONE
     Dosage: 1 D/F, AS NEEDED
  11. ADCIRCA [Suspect]
     Active Substance: TADALAFIL
     Indication: PULMONARY ARTERIAL HYPERTENSION
     Dosage: 40 MG, DAILY (1/D)
     Dates: start: 20101011, end: 20101013
  12. ADCIRCA [Suspect]
     Active Substance: TADALAFIL
     Dosage: 20 MG, DAILY (1/D)
  13. SIMVASTATIN. [Concomitant]
     Active Substance: SIMVASTATIN
     Dosage: 20 MG, UNK

REACTIONS (3)
  - Medication error [Unknown]
  - Intentional product misuse [Unknown]
  - Pain [Recovered/Resolved]
